FAERS Safety Report 10994893 (Version 1)
Quarter: 2015Q2

REPORT INFORMATION
  Report Type: Spontaneous
  Country: GB (occurrence: GB)
  Receive Date: 20150407
  Receipt Date: 20150407
  Transmission Date: 20150821
  Serious: Yes (Other)
  Sender: FDA-Public Use
  Company Number: PHHY2015GB040341

PATIENT
  Age: 32 Year
  Sex: Female

DRUGS (4)
  1. PREDNISOLONE. [Suspect]
     Active Substance: PREDNISOLONE
     Indication: CHRONIC GRAFT VERSUS HOST DISEASE IN SKIN
     Route: 065
  2. MYCOPHENOLATE MOFETIL. [Suspect]
     Active Substance: MYCOPHENOLATE MOFETIL
     Indication: CHRONIC GRAFT VERSUS HOST DISEASE IN SKIN
     Route: 065
  3. CICLOSPORIN [Suspect]
     Active Substance: CYCLOSPORINE
     Indication: CHRONIC GRAFT VERSUS HOST DISEASE IN SKIN
     Route: 065
  4. INTERLEUKIN-2 [Suspect]
     Active Substance: ALDESLEUKIN
     Indication: CHRONIC GRAFT VERSUS HOST DISEASE IN SKIN
     Route: 065

REACTIONS (9)
  - Scleroderma [Unknown]
  - Chronic graft versus host disease in skin [Unknown]
  - Erythema [Recovering/Resolving]
  - Skin erosion [Recovering/Resolving]
  - Blister [Unknown]
  - Rash [Unknown]
  - Skin mass [Unknown]
  - Haemangioma of skin [Unknown]
  - Pruritus [Recovering/Resolving]
